FAERS Safety Report 8757461 (Version 1)
Quarter: 2012Q4

REPORT INFORMATION
  Report Type: 
  Country: MX (occurrence: MX)
  Receive Date: 20120828
  Receipt Date: 20120828
  Transmission Date: 20130627
  Serious: Yes (Death, Hospitalization)
  Sender: FDA-Public Use
  Company Number: PHHY2012MX074079

PATIENT
  Age: 68 None
  Sex: Male

DRUGS (2)
  1. CO-DIOVAN [Suspect]
     Indication: HYPERTENSION
     Dosage: 2 DF (80/12.5 mg), Daily
     Dates: start: 2008
  2. ASPIRIN PROTECT [Concomitant]

REACTIONS (4)
  - Brain neoplasm [Fatal]
  - Head injury [Fatal]
  - Fall [Unknown]
  - Headache [Unknown]
